FAERS Safety Report 16071078 (Version 3)
Quarter: 2019Q2

REPORT INFORMATION
  Report Type: Spontaneous
  Country: US (occurrence: US)
  Receive Date: 20190314
  Receipt Date: 20190515
  Transmission Date: 20190711
  Serious: Yes (Other)
  Sender: FDA-Public Use
  Company Number: US-PFIZER INC-2019100628

PATIENT
  Sex: Male

DRUGS (1)
  1. ADVIL [Suspect]
     Active Substance: IBUPROFEN
     Dosage: 1 DF, UNK (1 GEL CAPLET)

REACTIONS (3)
  - Throat irritation [Unknown]
  - Dizziness [Unknown]
  - Parkinson^s disease [Recovering/Resolving]
